FAERS Safety Report 4730941-7 (Version None)
Quarter: 2005Q3

REPORT INFORMATION
  Report Type: 
  Country: None (occurrence: None)
  Receive Date: 20050801
  Receipt Date: 20050705
  Transmission Date: 20060218
  Serious: Yes (Hospitalization)
  Sender: FDA-Public Use
  Company Number: JP-MERCK-0507USA01530

PATIENT
  Age: 66 Year
  Sex: Male

DRUGS (13)
  1. PEPCID RPD [Suspect]
     Indication: GASTRIC ULCER
     Route: 048
     Dates: start: 20050519, end: 20050530
  2. PEPCID RPD [Suspect]
     Route: 048
     Dates: start: 20050531, end: 20050704
  3. ANTIMICROBIAL (UNSPECIFIED) [Concomitant]
     Indication: DIARRHOEA
     Route: 048
     Dates: start: 20050520
  4. EXCEGRAN [Concomitant]
     Indication: EPILEPSY
     Route: 048
     Dates: start: 20050604
  5. EXCEGRAN [Concomitant]
     Indication: PROPHYLAXIS
     Route: 048
     Dates: start: 20050604
  6. PROTAPHANE INNOLET [Concomitant]
     Route: 058
     Dates: start: 20050628
  7. HUMULIN N [Concomitant]
     Indication: DIABETES MELLITUS
     Route: 058
     Dates: start: 20050618
  8. CYMERIN [Suspect]
     Indication: BRAIN NEOPLASM
     Route: 041
     Dates: start: 20041006, end: 20041006
  9. ONCOVIN [Suspect]
     Indication: BRAIN NEOPLASM
     Route: 041
     Dates: start: 20041001, end: 20041001
  10. ONCOVIN [Suspect]
     Route: 041
     Dates: start: 20041101, end: 20041101
  11. NATULAN [Suspect]
     Indication: BRAIN NEOPLASM
     Route: 048
     Dates: start: 20041001, end: 20041001
  12. NIDRAN [Suspect]
     Indication: BRAIN NEOPLASM
     Route: 041
     Dates: start: 20041220, end: 20041220
  13. FERON [Suspect]
     Indication: BRAIN NEOPLASM
     Route: 041
     Dates: start: 20041220, end: 20050525

REACTIONS (3)
  - NEUTROPHIL COUNT DECREASED [None]
  - PANCYTOPENIA [None]
  - WHITE BLOOD CELL COUNT DECREASED [None]
